FAERS Safety Report 19432981 (Version 1)
Quarter: 2021Q2

REPORT INFORMATION
  Report Type: Spontaneous
  Country: CA (occurrence: CA)
  Receive Date: 20210618
  Receipt Date: 20210618
  Transmission Date: 20210717
  Serious: Yes (Life-Threatening, Other)
  Sender: FDA-Public Use
  Company Number: CA-SA-2021SA200917

PATIENT
  Age: 26 Year
  Sex: Male

DRUGS (11)
  1. CETIRIZINE HYDROCHLORIDE. [Concomitant]
     Active Substance: CETIRIZINE HYDROCHLORIDE
     Indication: PREMEDICATION
     Dosage: 5 MG
     Route: 048
  2. ALEMTUZUMAB [Suspect]
     Active Substance: ALEMTUZUMAB
     Indication: RELAPSING-REMITTING MULTIPLE SCLEROSIS
     Dosage: 12 MG, QD
     Route: 041
  3. RANITIDINE. [Concomitant]
     Active Substance: RANITIDINE
     Indication: PREMEDICATION
     Dosage: 150 MG
     Route: 048
  4. OLANZAPINE. [Suspect]
     Active Substance: OLANZAPINE
     Indication: HALLUCINATION
     Route: 048
  5. ACETAMINOPHEN. [Concomitant]
     Active Substance: ACETAMINOPHEN
     Indication: PREMEDICATION
     Dosage: 1 G
     Route: 048
  6. VITAMIN D3 [Concomitant]
     Active Substance: CHOLECALCIFEROL
     Dosage: UNK, QW
     Route: 065
  7. ZOPICLONE [Concomitant]
     Active Substance: ZOPICLONE
     Indication: SLEEP DISORDER
     Dosage: UNK
     Route: 048
  8. CELEXIA [Concomitant]
     Active Substance: CELECOXIB
     Route: 065
  9. METHYLPREDNISOLONE SODIUM SUCCINATE. [Suspect]
     Active Substance: METHYLPREDNISOLONE SODIUM SUCCINATE
     Indication: PRODUCT USED FOR UNKNOWN INDICATION
     Dosage: 1 G
     Route: 042
  10. ACYCLOVIR [ACICLOVIR] [Concomitant]
     Active Substance: ACYCLOVIR
     Indication: PREMEDICATION
     Dosage: 200 MG, BID
     Route: 048
  11. CANNABIS SATIVA [Concomitant]
     Active Substance: CANNABIS SATIVA FLOWERING TOP
     Dosage: UNK UNK, QD
     Route: 065

REACTIONS (51)
  - Decreased appetite [Recovered/Resolved]
  - Paranoia [Recovered/Resolved]
  - Specific gravity urine increased [Recovered/Resolved]
  - Depression [Recovered/Resolved]
  - Lymphocyte percentage decreased [Not Recovered/Not Resolved]
  - Bilirubin urine present [Recovered/Resolved]
  - Pneumonia [Not Recovered/Not Resolved]
  - Eosinophil percentage increased [Recovered/Resolved]
  - Neutrophil percentage increased [Recovered/Resolved]
  - Brain injury [Not Recovered/Not Resolved]
  - Oropharyngeal pain [Not Recovered/Not Resolved]
  - Abdominal pain [Recovered/Resolved]
  - Urine leukocyte esterase positive [Recovered/Resolved]
  - B-lymphocyte count decreased [Not Recovered/Not Resolved]
  - Abdominal distension [Recovered/Resolved]
  - Fall [Recovered/Resolved]
  - Monocyte percentage increased [Recovered/Resolved]
  - Heart rate decreased [Recovered/Resolved]
  - Hot flush [Not Recovered/Not Resolved]
  - Pain in extremity [Recovered/Resolved]
  - Chest discomfort [Recovered/Resolved]
  - Haematocrit decreased [Recovered/Resolved]
  - Red blood cells urine positive [Recovered/Resolved]
  - Urine ketone body present [Recovered/Resolved]
  - Pruritus [Recovered/Resolved]
  - Normocytic anaemia [Not Recovered/Not Resolved]
  - Paraesthesia [Recovered/Resolved]
  - Head injury [Not Recovered/Not Resolved]
  - Poor quality sleep [Recovered/Resolved]
  - Nausea [Not Recovered/Not Resolved]
  - White blood cells urine positive [Recovered/Resolved]
  - Oropharyngeal pain [Recovered/Resolved]
  - Cough [Not Recovered/Not Resolved]
  - Blood urine present [Recovered/Resolved]
  - Lymphocyte count decreased [Not Recovered/Not Resolved]
  - Bacterial test positive [Recovered/Resolved]
  - Red cell distribution width increased [Recovered/Resolved]
  - Anxiety [Not Recovered/Not Resolved]
  - B-lymphocyte count decreased [Recovered/Resolved]
  - Urine analysis abnormal [Not Recovered/Not Resolved]
  - Somnambulism [Recovered/Resolved]
  - Chest pain [Recovered/Resolved]
  - Fatigue [Recovered/Resolved]
  - White blood cell count decreased [Recovered/Resolved]
  - Acne [Not Recovered/Not Resolved]
  - Hallucination [Recovered/Resolved]
  - Rash erythematous [Not Recovered/Not Resolved]
  - Dysgeusia [Recovered/Resolved]
  - Headache [Recovered/Resolved]
  - Platelet count decreased [Not Recovered/Not Resolved]
  - Rash [Not Recovered/Not Resolved]
